FAERS Safety Report 18599781 (Version 1)
Quarter: 2020Q4

REPORT INFORMATION
  Report Type: Spontaneous
  Country: US (occurrence: US)
  Receive Date: 20201209
  Receipt Date: 20201209
  Transmission Date: 20210114
  Serious: Yes (Hospitalization)
  Sender: FDA-Public Use
  Company Number: None

PATIENT
  Sex: Male

DRUGS (10)
  1. PROCHLORPER TAB 10MG [Concomitant]
     Dates: start: 20201201
  2. DEXCOM G6 MIS SENSOR [Concomitant]
     Dates: start: 20201104
  3. CLONAZEPAM TAB 0.5MG [Concomitant]
     Dates: start: 20201117
  4. GABAPENTIN CAP 300MG [Concomitant]
     Active Substance: GABAPENTIN
     Dates: start: 20201130
  5. LANTUS INJ 100/ML [Concomitant]
     Dates: start: 20201103
  6. HYDROMORPHON TAB 4MG [Concomitant]
     Dates: start: 20201117
  7. ELIQUIS [Concomitant]
     Active Substance: APIXABAN
     Dates: start: 20201123
  8. LORAZEPAM TAB 1MG [Concomitant]
     Dates: start: 20201117
  9. UDENYCA [Suspect]
     Active Substance: PEGFILGRASTIM-CBQV
     Indication: PANCREATIC CARCINOMA
     Dosage: ?          OTHER FREQUENCY:EVERY 2 WEEKS;?
     Route: 058
     Dates: start: 20200625
  10. SERTRALINE TAB 25MG [Concomitant]
     Dates: start: 20201116

REACTIONS (1)
  - Internal haemorrhage [None]
